FAERS Safety Report 14986057 (Version 1)
Quarter: 2018Q2

REPORT INFORMATION
  Report Type: Report from Study
  Country: US (occurrence: US)
  Receive Date: 20180607
  Receipt Date: 20180607
  Transmission Date: 20180711
  Serious: No
  Sender: FDA-Public Use
  Company Number: PHEH2018US022219

PATIENT
  Age: 14 Year
  Sex: Female
  Weight: 43.54 kg

DRUGS (1)
  1. OMNITROPE [Suspect]
     Active Substance: SOMATROPIN
     Indication: GROWTH RETARDATION
     Dosage: 1.8 MG, QD
     Route: 058
     Dates: start: 20161116

REACTIONS (6)
  - Nausea [Unknown]
  - Dry skin [Unknown]
  - Diplopia [Unknown]
  - Skin exfoliation [Unknown]
  - Headache [Unknown]
  - Vision blurred [Unknown]

NARRATIVE: CASE EVENT DATE: 20171115
